FAERS Safety Report 16535459 (Version 4)
Quarter: 2020Q3

REPORT INFORMATION
  Report Type: Spontaneous
  Country: US (occurrence: US)
  Receive Date: 20190705
  Receipt Date: 20200915
  Transmission Date: 20201102
  Serious: Yes (Life-Threatening, Other)
  Sender: FDA-Public Use
  Company Number: US-PFIZER INC-2019287173

PATIENT
  Age: 48 Year
  Sex: Female
  Weight: 124.8 kg

DRUGS (1)
  1. PHENYTOIN SODIUM. [Suspect]
     Active Substance: PHENYTOIN SODIUM
     Indication: SEIZURE
     Dosage: UNK
     Dates: start: 2007

REACTIONS (5)
  - Near death experience [Unknown]
  - Seizure [Unknown]
  - Product compounding quality issue [Unknown]
  - Apnoea [Unknown]
  - Drug ineffective [Unknown]
